FAERS Safety Report 7069795-5 (Version None)
Quarter: 2010Q4

REPORT INFORMATION
  Report Type: 
  Country: None (occurrence: None)
  Receive Date: 20101028
  Receipt Date: 20100702
  Transmission Date: 20110411
  Serious: No
  Sender: FDA-Public Use
  Company Number: US-WYE-H15343710

PATIENT
  Age: 38 Year
  Sex: Female
  Weight: 49.49 kg

DRUGS (2)
  1. ADVIL [Suspect]
     Indication: DYSMENORRHOEA
     Dosage: 2 CAPSULES ONCE
     Route: 048
  2. MULTI-VITAMINS [Concomitant]

REACTIONS (2)
  - PRODUCT QUALITY ISSUE [None]
  - VOMITING [None]
